FAERS Safety Report 12728941 (Version 2)
Quarter: 2017Q4

REPORT INFORMATION
  Report Type: Report from Study
  Country: BR (occurrence: BR)
  Receive Date: 20160909
  Receipt Date: 20171128
  Transmission Date: 20180320
  Serious: Yes (Other)
  Sender: FDA-Public Use
  Company Number: BR-JNJFOC-20160905341

PATIENT
  Age: 82 Year
  Sex: Female
  Weight: 40 kg

DRUGS (7)
  1. SIMPONI [Suspect]
     Active Substance: GOLIMUMAB
     Indication: RHEUMATOID ARTHRITIS
     Route: 058
     Dates: start: 20150624, end: 201608
  2. LOSARTAN. [Concomitant]
     Active Substance: LOSARTAN
     Route: 065
  3. AMLODIPINE [Concomitant]
     Active Substance: AMLODIPINE BESYLATE
     Route: 065
  4. OSTEONUTRI [Concomitant]
     Route: 065
  5. SIMPONI [Suspect]
     Active Substance: GOLIMUMAB
     Indication: RHEUMATOID ARTHRITIS
     Route: 058
     Dates: start: 20160905
  6. VITAMIN D [Concomitant]
     Active Substance: CHOLECALCIFEROL
     Route: 065
  7. OSTEOBAN [Concomitant]
     Route: 065

REACTIONS (8)
  - Post procedural haemorrhage [Recovered/Resolved]
  - Coagulopathy [Recovering/Resolving]
  - Skin discolouration [Unknown]
  - Anaemia [Recovering/Resolving]
  - Blood urine present [Unknown]
  - Swelling [Unknown]
  - Injection site discolouration [Unknown]
  - Weight increased [Unknown]

NARRATIVE: CASE EVENT DATE: 201607
